FAERS Safety Report 24721289 (Version 1)
Quarter: 2024Q4

REPORT INFORMATION
  Report Type: Spontaneous
  Country: US (occurrence: None)
  Receive Date: 20241210
  Receipt Date: 20241210
  Transmission Date: 20250115
  Serious: No
  Sender: Public
  Company Number: None

PATIENT
  Age: 39 Year
  Sex: Male
  Weight: 90 kg

DRUGS (1)
  1. ALKA-SELTZER PLUS SEVERE COLD AND FLU [Suspect]
     Active Substance: ACETAMINOPHEN\CHLORPHENIRAMINE MALEATE\DEXTROMETHORPHAN HYDROBROMIDE\PHENYLEPHRINE HYDROCHLORIDE
     Indication: Influenza
     Dates: start: 20241210, end: 20241210

REACTIONS (1)
  - Somnolence [None]

NARRATIVE: CASE EVENT DATE: 20241210
